FAERS Safety Report 7789247-4 (Version None)
Quarter: 2011Q3

REPORT INFORMATION
  Report Type: 
  Country: None (occurrence: None)
  Receive Date: 20110930
  Receipt Date: 20100916
  Transmission Date: 20111222
  Serious: Yes (Other)
  Sender: FDA-Public Use
  Company Number: US-BAYER-201021561NA

PATIENT
  Age: 30 Year
  Sex: Female
  Weight: 88 kg

DRUGS (8)
  1. ACIPHEX [Concomitant]
  2. GAVISCON [Concomitant]
     Route: 048
  3. BENTYL [Concomitant]
     Route: 048
  4. YASMIN [Suspect]
     Indication: MENSTRUAL DISORDER
  5. PROTONIX [Concomitant]
     Route: 048
  6. YASMIN [Suspect]
     Indication: ORAL CONTRACEPTION
     Dosage: UNK UNK, QD
     Route: 048
     Dates: start: 20010101, end: 20090201
  7. CLINDESSE [Concomitant]
     Dosage: 2 %, UNK
  8. TAGAMET [Concomitant]
     Route: 048

REACTIONS (1)
  - CHOLECYSTITIS CHRONIC [None]
